FAERS Safety Report 12542525 (Version 1)
Quarter: 2016Q3

REPORT INFORMATION
  Report Type: Report from Study
  Country: CN (occurrence: CN)
  Receive Date: 20160709
  Receipt Date: 20160709
  Transmission Date: 20161109
  Serious: Yes (Death)
  Sender: FDA-Public Use
  Company Number: CN-ACCORD-042224

PATIENT

DRUGS (5)
  1. PACLITAXEL/PACLITAXEL LIPOSOME [Suspect]
     Active Substance: PACLITAXEL
     Indication: OESOPHAGEAL SQUAMOUS CELL CARCINOMA
     Dosage: 50 MG/M2/DAY FOR DAY 1, 5-6 WEEKS THEN IN THREE WEEKLY REGIMEN RECEIVED 150 MG/ M2
     Route: 042
  2. DOCETAXEL. [Suspect]
     Active Substance: DOCETAXEL
     Indication: OESOPHAGEAL SQUAMOUS CELL CARCINOMA
     Dosage: 25 MG/M2/DAY ON DAY 1, 5-6 WEEKS THEN IN THREE WEEKLY REGIMEN RECEIVED 75 MG/ M2
     Route: 042
  3. CISPLATIN. [Suspect]
     Active Substance: CISPLATIN
     Indication: OESOPHAGEAL SQUAMOUS CELL CARCINOMA
     Dosage: 25 MG/M2/DAY ON DAY 1, 5-6WEEKS  THEN IN THREE WEEKLY REGIMEN RECEIVED 75 MG/ M2
  4. NEDAPLATIN [Suspect]
     Active Substance: NEDAPLATIN
     Indication: OESOPHAGEAL SQUAMOUS CELL CARCINOMA
     Dosage: 75 MG/M2 ON DAYS 1
  5. CARBOPLATIN. [Suspect]
     Active Substance: CARBOPLATIN
     Indication: OESOPHAGEAL SQUAMOUS CELL CARCINOMA
     Dosage: AREA UNDER THE CURVE: 2 ON DAY 1  THEN IN THREE WEEKLY REGIMEN AREA UNDER THE CURVE: 5

REACTIONS (1)
  - Intra-abdominal haemorrhage [Fatal]
